FAERS Safety Report 4315414-8 (Version None)
Quarter: 2004Q1

REPORT INFORMATION
  Report Type: 
  Country: None (occurrence: None)
  Receive Date: 20040309
  Receipt Date: 20040223
  Transmission Date: 20041129
  Serious: Yes (Hospitalization)
  Sender: FDA-Public Use
  Company Number: 187028

PATIENT
  Age: 46 Year
  Sex: Female

DRUGS (3)
  1. AVONEX [Suspect]
     Indication: MULTIPLE SCLEROSIS
     Dosage: 30 MCG QW IM
     Route: 030
     Dates: end: 20031201
  2. CELEBREX [Concomitant]
  3. NEURONTIN [Concomitant]

REACTIONS (6)
  - AUTOMATIC BLADDER [None]
  - BLOOD POTASSIUM INCREASED [None]
  - PARAPLEGIA [None]
  - RENAL FAILURE ACUTE [None]
  - SENSATION OF PRESSURE [None]
  - VOMITING [None]
